FAERS Safety Report 5934375-9 (Version None)
Quarter: 2008Q4

REPORT INFORMATION
  Report Type: 
  Country: None (occurrence: None)
  Receive Date: 20081029
  Receipt Date: 20081024
  Transmission Date: 20090506
  Serious: Yes (Death, Hospitalization, Disabling)
  Sender: FDA-Public Use
  Company Number: PHBS2007JP12565

PATIENT
  Sex: Female

DRUGS (4)
  1. AREDIA [Suspect]
     Indication: METASTASES TO BONE
     Dosage: 45 MG, QMO
     Route: 042
     Dates: start: 20030624, end: 20060701
  2. PACLITAXEL [Concomitant]
     Dates: start: 20030501
  3. HERCEPTIN [Concomitant]
     Dates: start: 20040109
  4. DOCETAXEL [Concomitant]
     Dates: start: 20040401

REACTIONS (10)
  - ANOREXIA [None]
  - BONE DISORDER [None]
  - HEPATIC FAILURE [None]
  - LIP SWELLING [None]
  - MALIGNANT NEOPLASM PROGRESSION [None]
  - METASTASES TO LIVER [None]
  - ORAL PAIN [None]
  - OSTEONECROSIS [None]
  - SOFT TISSUE INFLAMMATION [None]
  - TOOTH EXTRACTION [None]
